FAERS Safety Report 6119539-6 (Version None)
Quarter: 2009Q1

REPORT INFORMATION
  Report Type: 
  Country: None (occurrence: None)
  Receive Date: 20090316
  Receipt Date: 20090306
  Transmission Date: 20090719
  Serious: Yes (Hospitalization)
  Sender: FDA-Public Use
  Company Number: A0773283A

PATIENT
  Sex: Female
  Weight: 86.4 kg

DRUGS (1)
  1. AVANDIA [Suspect]
     Route: 048
     Dates: start: 20010801, end: 20070401

REACTIONS (11)
  - ACUTE CORONARY SYNDROME [None]
  - ANXIETY [None]
  - ASTHENIA [None]
  - CHEST PAIN [None]
  - DEPRESSION [None]
  - DYSPNOEA [None]
  - FATIGUE [None]
  - MYOCARDIAL INFARCTION [None]
  - PANIC ATTACK [None]
  - PERONEAL NERVE PALSY [None]
  - TRANSIENT ISCHAEMIC ATTACK [None]
